FAERS Safety Report 4859361-1 (Version None)
Quarter: 2005Q4

REPORT INFORMATION
  Report Type: 
  Country: None (occurrence: None)
  Receive Date: 20051219
  Receipt Date: 20041116
  Transmission Date: 20060501
  Serious: No
  Sender: FDA-Public Use
  Company Number: US-GLAXOSMITHKLINE-A0534259A

PATIENT
  Age: 31 Year
  Sex: Female

DRUGS (1)
  1. NICODERM CQ [Suspect]
     Dates: start: 20041108

REACTIONS (12)
  - ABNORMAL DREAMS [None]
  - ANXIETY [None]
  - CONFUSIONAL STATE [None]
  - DEPRESSION [None]
  - EXCITABILITY [None]
  - FEELING ABNORMAL [None]
  - HYPERACUSIS [None]
  - HYPERAESTHESIA [None]
  - IRRITABILITY [None]
  - NERVOUSNESS [None]
  - PAROSMIA [None]
  - SENSORY DISTURBANCE [None]
